FAERS Safety Report 10189470 (Version 3)
Quarter: 2014Q3

REPORT INFORMATION
  Report Type: Spontaneous
  Country: MX (occurrence: MX)
  Receive Date: 20140522
  Receipt Date: 20140825
  Transmission Date: 20150326
  Serious: Yes (Other)
  Sender: FDA-Public Use
  Company Number: MX-PFIZER INC-2014140452

PATIENT
  Age: 70 Year
  Sex: Female

DRUGS (2)
  1. CELEBREX [Suspect]
     Active Substance: CELECOXIB
     Dosage: 200 MG, 2X/DAY
     Route: 048
     Dates: start: 201405
  2. CELEBREX [Suspect]
     Active Substance: CELECOXIB
     Indication: ARTHRALGIA
     Dosage: 200 MG, 1X/DAY
     Route: 048
     Dates: start: 2012

REACTIONS (6)
  - Arthropathy [Not Recovered/Not Resolved]
  - Intentional product misuse [Unknown]
  - Osteoarthritis [Unknown]
  - Tendon rupture [Unknown]
  - Osteonecrosis [Unknown]
  - Joint injury [Unknown]

NARRATIVE: CASE EVENT DATE: 201405
